FAERS Safety Report 8937118 (Version 1)
Quarter: 2012Q4

REPORT INFORMATION
  Report Type: Spontaneous
  Country: US (occurrence: None)
  Receive Date: 20121128
  Receipt Date: 20121128
  Transmission Date: 20130627
  Serious: Yes (Other)
  Sender: FDA-Public Use
  Company Number: None

PATIENT
  Age: 72 Year
  Sex: Male
  Weight: 77.11 kg

DRUGS (2)
  1. IMIQUIMOD [Suspect]
     Indication: ULCER
     Route: 061
     Dates: start: 20121119, end: 20121124
  2. IMIQUIMOD [Suspect]
     Indication: HEALING IMPAIRED
     Route: 061
     Dates: start: 20121119, end: 20121124

REACTIONS (6)
  - Acne [None]
  - Pruritus [None]
  - Rash macular [None]
  - Erythema [None]
  - Pain [None]
  - Hyperaesthesia [None]
